FAERS Safety Report 6651092-0 (Version None)
Quarter: 2010Q1

REPORT INFORMATION
  Report Type: 
  Country: None (occurrence: None)
  Receive Date: 20100325
  Receipt Date: 20100315
  Transmission Date: 20100710
  Serious: Yes (Life-Threatening, Hospitalization)
  Sender: FDA-Public Use
  Company Number: JP-PFIZER INC-2010023652

PATIENT
  Age: 69 Year
  Sex: Male
  Weight: 64.4 kg

DRUGS (4)
  1. SUNITINIB MALATE [Suspect]
     Indication: RENAL CELL CARCINOMA
     Dosage: 50 MG, 1X/DAY
     Route: 048
     Dates: start: 20081009
  2. DEPAKENE [Concomitant]
     Dosage: UNK
     Route: 048
  3. FAMOTIDINE [Concomitant]
     Route: 048
  4. HIRUDOID [Concomitant]
     Dosage: UNK
     Route: 062
     Dates: start: 20081011

REACTIONS (1)
  - ARTERY DISSECTION [None]
